FAERS Safety Report 4975800-X (Version None)
Quarter: 2006Q2

REPORT INFORMATION
  Report Type: 
  Country: None (occurrence: None)
  Receive Date: 20060411
  Receipt Date: 20060330
  Transmission Date: 20061013
  Serious: Yes (Other)
  Sender: FDA-Public Use
  Company Number: 2006-03-1408

PATIENT
  Age: 52 Year
  Sex: Female
  Weight: 63 kg

DRUGS (1)
  1. CLARITIN [Suspect]
     Indication: URTICARIA
     Dosage: 10 ML QD ORAL
     Route: 048
     Dates: start: 20060315, end: 20060315

REACTIONS (2)
  - CONDITION AGGRAVATED [None]
  - URTICARIA [None]
